FAERS Safety Report 4964490-8 (Version None)
Quarter: 2006Q1

REPORT INFORMATION
  Report Type: 
  Country: None (occurrence: None)
  Receive Date: 20060331
  Receipt Date: 20060316
  Transmission Date: 20060701
  Serious: Yes (Death)
  Sender: FDA-Public Use
  Company Number: US200601001523

PATIENT
  Age: 45 Year
  Sex: Male
  Weight: 99.8 kg

DRUGS (8)
  1. ZYPREXA [Suspect]
     Indication: SCHIZOPHRENIA
     Dosage: 7.5 MG, DAILY (1/D); 10 MG, DAILY, (1/D); 7.5 MG DAILY, (1/D)
     Dates: start: 20010101, end: 20030624
  2. ZYPREXA [Suspect]
     Indication: SCHIZOPHRENIA
     Dosage: 7.5 MG, DAILY (1/D); 10 MG, DAILY, (1/D); 7.5 MG DAILY, (1/D)
     Dates: start: 20031216, end: 20040427
  3. ZYPREXA [Suspect]
     Indication: SCHIZOPHRENIA
     Dosage: 7.5 MG, DAILY (1/D); 10 MG, DAILY, (1/D); 7.5 MG DAILY, (1/D)
     Dates: start: 20030624, end: 20041216
  4. ZYPREXA [Suspect]
     Indication: SCHIZOPHRENIA
     Dosage: 7.5 MG, DAILY (1/D); 10 MG, DAILY, (1/D); 7.5 MG DAILY, (1/D)
     Dates: start: 20040427
  5. RISPERIDONE [Concomitant]
  6. ESKALITH - SLOW RELEASE (LITHIUM CARBONATE) TABLET [Concomitant]
  7. TOPAMAX [Concomitant]
  8. HISTINEX HC (CHLORPHENAMINE MALEATE, HYDROCODONE BITARTRATE, PHENYLEPH [Concomitant]

REACTIONS (1)
  - DIABETES MELLITUS NON-INSULIN-DEPENDENT [None]
